FAERS Safety Report 14345109 (Version 2)
Quarter: 2018Q2

REPORT INFORMATION
  Report Type: Spontaneous
  Country: US (occurrence: US)
  Receive Date: 20180103
  Receipt Date: 20180402
  Transmission Date: 20180711
  Serious: No
  Sender: FDA-Public Use
  Company Number: US-AUROBINDO-AUR-APU-2017-45101

PATIENT
  Sex: Female
  Weight: 55 kg

DRUGS (2)
  1. FASLODEX [Concomitant]
     Active Substance: FULVESTRANT
     Indication: PRODUCT USED FOR UNKNOWN INDICATION
     Dosage: UNK
     Route: 065
  2. ESZOPICLONE  TABLET 2 MG USP [Suspect]
     Active Substance: ESZOPICLONE
     Indication: INSOMNIA
     Dosage: 1 DF, DAILY
     Route: 048
     Dates: start: 20170119, end: 20170312

REACTIONS (1)
  - Dysgeusia [Recovering/Resolving]
